FAERS Safety Report 9345609 (Version 1)
Quarter: 2013Q2

REPORT INFORMATION
  Report Type: Spontaneous
  Country: US (occurrence: US)
  Receive Date: 20130613
  Receipt Date: 20130613
  Transmission Date: 20140414
  Serious: No
  Sender: FDA-Public Use
  Company Number: US-009507513-1306USA003983

PATIENT
  Age: 77 Year
  Sex: Male

DRUGS (2)
  1. JANUVIA [Suspect]
     Indication: DIABETES MELLITUS
     Dosage: 100 MG, ONCE A DAY, MID-DAY WITH FOOD
     Route: 048
     Dates: start: 201211
  2. GLIMEPIRIDE [Concomitant]

REACTIONS (1)
  - Migraine with aura [Unknown]
